FAERS Safety Report 15641980 (Version 1)
Quarter: 2018Q4

REPORT INFORMATION
  Report Type: Spontaneous
  Country: CN (occurrence: CN)
  Receive Date: 20181121
  Receipt Date: 20181121
  Transmission Date: 20190205
  Serious: Yes (Other)
  Sender: FDA-Public Use
  Company Number: CN-PFIZER INC-2018475208

PATIENT
  Sex: Male

DRUGS (1)
  1. PHARMORUBICIN [Suspect]
     Active Substance: EPIRUBICIN
     Indication: BLADDER CANCER
     Dosage: 50 MG, WEEKLY
     Route: 043
     Dates: start: 20181105

REACTIONS (3)
  - Rash erythematous [Recovering/Resolving]
  - Hypotension [Recovering/Resolving]
  - Shock [Recovering/Resolving]

NARRATIVE: CASE EVENT DATE: 20181112
